FAERS Safety Report 4644020-0 (Version None)
Quarter: 2005Q2

REPORT INFORMATION
  Report Type: 
  Country: None (occurrence: None)
  Receive Date: 20050331
  Receipt Date: 20041229
  Transmission Date: 20051028
  Serious: No
  Sender: FDA-Public Use
  Company Number: 04P-163-0284986-00

PATIENT
  Age: 63 Year
  Sex: Female
  Weight: 90.7194 kg

DRUGS (8)
  1. HUMIRA [Suspect]
     Indication: RHEUMATOID ARTHRITIS
     Dosage: 40 MG, 1 IN 2 WK, SUBCUTANEOUS
     Route: 058
     Dates: start: 20040908
  2. METHOTREXATE [Concomitant]
  3. TRIAMTERENE [Concomitant]
  4. FOLIC ACID [Concomitant]
  5. PREDNISONE [Concomitant]
  6. RABEPRAZOLE SODIUM [Concomitant]
  7. LEXAPRO [Concomitant]
  8. ASPIRIN [Concomitant]

REACTIONS (1)
  - NASOPHARYNGITIS [None]
